FAERS Safety Report 20961693 (Version 1)
Quarter: 2022Q2

REPORT INFORMATION
  Report Type: Spontaneous
  Country: PL (occurrence: PL)
  Receive Date: 20220615
  Receipt Date: 20220615
  Transmission Date: 20220720
  Serious: Yes (Other)
  Sender: FDA-Public Use
  Company Number: PL-RECKITT BENCKISER HEALTHCARE INT LIMITED-RB-090066-2022

PATIENT
  Age: 23 Year
  Sex: Female

DRUGS (2)
  1. IBUPROFEN [Suspect]
     Active Substance: IBUPROFEN
     Indication: Back pain
     Dosage: UNK
  2. ACETAMINOPHEN [Suspect]
     Active Substance: ACETAMINOPHEN
     Indication: Back pain
     Dosage: UNK

REACTIONS (15)
  - Urinary tract infection [Unknown]
  - Chills [Unknown]
  - Biliary colic [Unknown]
  - Haematuria [Unknown]
  - Renal cyst ruptured [Unknown]
  - Cystitis [Unknown]
  - Leukocytosis [Unknown]
  - Renal colic [Unknown]
  - Proteinuria [Unknown]
  - Condition aggravated [Unknown]
  - Leukocyturia [Unknown]
  - Costovertebral angle tenderness [Unknown]
  - Pyelonephritis acute [Unknown]
  - Pyrexia [Unknown]
  - Nausea [Unknown]
